FAERS Safety Report 17351567 (Version 4)
Quarter: 2020Q3

REPORT INFORMATION
  Report Type: Report from Study
  Country: US (occurrence: US)
  Receive Date: 20200130
  Receipt Date: 20200806
  Transmission Date: 20201102
  Serious: Yes (Death, Hospitalization)
  Sender: FDA-Public Use
  Company Number: US-ACTELION-A-NJ2020-201100

PATIENT
  Age: 81 Year
  Sex: Female
  Weight: 96.15 kg

DRUGS (3)
  1. OPSUMIT [Suspect]
     Active Substance: MACITENTAN
     Indication: PULMONARY HYPERTENSION
     Dosage: 10 MG, QD
     Route: 048
  2. ELIQUIS [Concomitant]
     Active Substance: APIXABAN
  3. SILDENAFIL CITRATE. [Concomitant]
     Active Substance: SILDENAFIL CITRATE

REACTIONS (5)
  - Fall [Unknown]
  - Foot fracture [Unknown]
  - Skin laceration [Unknown]
  - Death [Fatal]
  - Hypertensive crisis [Unknown]

NARRATIVE: CASE EVENT DATE: 20191128
